FAERS Safety Report 7118864-X (Version None)
Quarter: 2010Q4

REPORT INFORMATION
  Report Type: 
  Country: None (occurrence: None)
  Receive Date: 20101123
  Receipt Date: 20100930
  Transmission Date: 20110411
  Serious: No
  Sender: FDA-Public Use
  Company Number: US-KINGPHARMUSA00001-K201001220

PATIENT
  Age: 75 Year
  Sex: Female

DRUGS (6)
  1. FLECTOR [Suspect]
     Indication: MUSCULOSKELETAL PAIN
     Dosage: 1 PATCH, PRN
     Route: 061
     Dates: start: 20100401
  2. FLECTOR [Suspect]
     Indication: BACK PAIN
  3. NEXIUM [Concomitant]
  4. VICODIN [Concomitant]
  5. BENICAR [Concomitant]
     Indication: HYPERTENSION
  6. ANTIHYPERTENSIVES [Concomitant]
     Indication: HYPERTENSION

REACTIONS (9)
  - COLD SWEAT [None]
  - DIZZINESS [None]
  - DYSGEUSIA [None]
  - FEELING ABNORMAL [None]
  - FEELING HOT [None]
  - HEADACHE [None]
  - MALAISE [None]
  - NAUSEA [None]
  - PAIN IN JAW [None]
